FAERS Safety Report 6856131-X (Version None)
Quarter: 2010Q3

REPORT INFORMATION
  Report Type: 
  Country: None (occurrence: None)
  Receive Date: 20100719
  Receipt Date: 20100706
  Transmission Date: 20110219
  Serious: Yes (Other)
  Sender: FDA-Public Use
  Company Number: PHHY2010US45153

PATIENT
  Sex: Female

DRUGS (5)
  1. DIOVAN [Suspect]
     Indication: HYPERTENSION
     Dosage: 1 TAB OF 320 MG
  2. DIOVAN [Suspect]
     Dosage: HALF OF 320 MG IN THE MORNING AND HALF AT NIGHT
  3. DIOVAN [Suspect]
     Dosage: 320 MG, BID
  4. THYROID TAB [Concomitant]
  5. HYDROCHLOROTHIAZIDE [Concomitant]

REACTIONS (5)
  - ANAEMIA [None]
  - BLOOD CREATININE INCREASED [None]
  - BLOOD PRESSURE SYSTOLIC INCREASED [None]
  - DRUG INEFFECTIVE [None]
  - RENAL DISORDER [None]
